FAERS Safety Report 24759982 (Version 1)
Quarter: 2024Q4

REPORT INFORMATION
  Report Type: Spontaneous
  Country: AT (occurrence: AT)
  Receive Date: 20241220
  Receipt Date: 20241220
  Transmission Date: 20250115
  Serious: Yes (Life-Threatening, Other)
  Sender: BRACCO
  Company Number: None

PATIENT
  Age: 80 Year
  Sex: Male

DRUGS (1)
  1. IOPAMIDOL [Suspect]
     Active Substance: IOPAMIDOL
     Indication: Magnetic resonance imaging
     Dosage: IN ACCORDANCE WITH THE SUMMARY OF PRODUCT CHARACTERISTICS AND RECOMMENDATIONS FOR USE
     Dates: start: 20220901, end: 20220901

REACTIONS (2)
  - Off label use [Recovered/Resolved]
  - Type I hypersensitivity [Recovered/Resolved]

NARRATIVE: CASE EVENT DATE: 20220901
